FAERS Safety Report 24618416 (Version 3)
Quarter: 2024Q4

REPORT INFORMATION
  Report Type: Spontaneous
  Country: US (occurrence: US)
  Receive Date: 20241114
  Receipt Date: 20241209
  Transmission Date: 20250115
  Serious: Yes (Hospitalization)
  Sender: ABBVIE
  Company Number: US-ABBVIE-6003395

PATIENT
  Age: 33 Year
  Sex: Female
  Weight: 58.967 kg

DRUGS (3)
  1. LILETTA [Suspect]
     Active Substance: LEVONORGESTREL
     Indication: Contraception
     Dosage: TIME INTERVAL: AS NECESSARY
     Route: 015
     Dates: start: 20240405, end: 20240415
  2. LABETALOL [Concomitant]
     Active Substance: LABETALOL
     Indication: Hypertension
     Dosage: HALFT TWO TIMES A DAY
     Route: 048
  3. CALCIUM\CHOLECALCIFEROL [Concomitant]
     Active Substance: CALCIUM\CHOLECALCIFEROL
     Indication: Mineral supplementation
     Dosage: 600 MG/20 MG
     Route: 048

REACTIONS (1)
  - Uterine perforation [Recovered/Resolved]

NARRATIVE: CASE EVENT DATE: 20240409
